FAERS Safety Report 4847514-8 (Version None)
Quarter: 2005Q4

REPORT INFORMATION
  Report Type: 
  Country: None (occurrence: None)
  Receive Date: 20051207
  Receipt Date: 20051130
  Transmission Date: 20060501
  Serious: Yes (Other)
  Sender: FDA-Public Use
  Company Number: PHNU2005DE03980

PATIENT
  Age: 49 Year
  Sex: Female
  Weight: 80 kg

DRUGS (1)
  1. EMSELEX EXTENDED RELEASE [Suspect]
     Indication: HYPERTONIC BLADDER
     Dosage: 7.5 MG DAILY
     Route: 048
     Dates: start: 20050303, end: 20050311

REACTIONS (3)
  - FACE OEDEMA [None]
  - PHARYNGEAL OEDEMA [None]
  - PRURITUS [None]
